FAERS Safety Report 14592654 (Version 1)
Quarter: 2018Q1

REPORT INFORMATION
  Report Type: Report from Study
  Country: US (occurrence: US)
  Receive Date: 20180302
  Receipt Date: 20180302
  Transmission Date: 20180509
  Serious: Yes (Hospitalization, Other)
  Sender: FDA-Public Use
  Company Number: PHEH2018US007275

PATIENT
  Age: 24 Year
  Sex: Male

DRUGS (1)
  1. KYMRIAH [Suspect]
     Active Substance: TISAGENLECLEUCEL
     Indication: ACUTE LYMPHOCYTIC LEUKAEMIA REFRACTORY
     Dosage: UNK
     Route: 065
     Dates: start: 20171215

REACTIONS (7)
  - Memory impairment [Unknown]
  - Abdominal discomfort [Unknown]
  - Pyrexia [Recovered/Resolved]
  - Delirium [Unknown]
  - Decreased appetite [Unknown]
  - Vision blurred [Unknown]
  - Dysgeusia [Recovered/Resolved]

NARRATIVE: CASE EVENT DATE: 20171215
